FAERS Safety Report 10771567 (Version 7)
Quarter: 2017Q4

REPORT INFORMATION
  Report Type: Report from Study
  Country: DE (occurrence: DE)
  Receive Date: 20150206
  Receipt Date: 20171205
  Transmission Date: 20180320
  Serious: Yes (Hospitalization)
  Sender: FDA-Public Use
  Company Number: DE-JNJFOC-20150200629

PATIENT
  Age: 22 Year
  Sex: Male
  Weight: 51 kg

DRUGS (2)
  1. SIMPONI [Suspect]
     Active Substance: GOLIMUMAB
     Indication: COLITIS ULCERATIVE
     Route: 058
     Dates: start: 20140716
  2. SIMPONI [Suspect]
     Active Substance: GOLIMUMAB
     Indication: COLITIS ULCERATIVE
     Route: 058
     Dates: start: 20141001, end: 20141002

REACTIONS (9)
  - General physical condition abnormal [Unknown]
  - Fistula [Unknown]
  - Drug ineffective [Not Recovered/Not Resolved]
  - Gastrointestinal infection [Recovered/Resolved]
  - Gastroenteritis [Unknown]
  - Vomiting [Unknown]
  - Ileostomy closure [Unknown]
  - Intestinal anastomosis [Unknown]
  - Proctocolectomy [Recovered/Resolved]

NARRATIVE: CASE EVENT DATE: 20140720
